FAERS Safety Report 14205423 (Version 1)
Quarter: 2017Q4

REPORT INFORMATION
  Report Type: Spontaneous
  Country: US (occurrence: US)
  Receive Date: 20171120
  Receipt Date: 20171120
  Transmission Date: 20180321
  Serious: Yes (Other)
  Sender: FDA-Public Use
  Company Number: US-ROCHE-2024295

PATIENT
  Sex: Female

DRUGS (3)
  1. BONIVA [Suspect]
     Active Substance: IBANDRONATE SODIUM
     Indication: PRODUCT USED FOR UNKNOWN INDICATION
     Dosage: ONGOING:NO
     Route: 065
     Dates: start: 200804, end: 201404
  2. AMPICILLIN [Concomitant]
     Active Substance: AMPICILLIN
     Dosage: ONGOING:NO
     Route: 048
     Dates: end: 20171108
  3. AMPICILLIN [Concomitant]
     Active Substance: AMPICILLIN
     Dosage: VIA PICC LINE ;ONGOING: NO
     Route: 042
     Dates: start: 20161111, end: 201701

REACTIONS (13)
  - Osteonecrosis of jaw [Not Recovered/Not Resolved]
  - Feeling abnormal [Unknown]
  - Weight increased [Unknown]
  - Fear [Unknown]
  - Actinomycosis [Unknown]
  - Quality of life decreased [Not Recovered/Not Resolved]
  - Gingival swelling [Unknown]
  - Wound infection [Unknown]
  - Pain [Unknown]
  - Fatigue [Unknown]
  - Bone swelling [Unknown]
  - Fear [Not Recovered/Not Resolved]
  - Osteomyelitis [Unknown]

NARRATIVE: CASE EVENT DATE: 2011
